FAERS Safety Report 25964928 (Version 1)
Quarter: 2025Q4

REPORT INFORMATION
  Report Type: Spontaneous
  Country: EU (occurrence: EU)
  Receive Date: 20251027
  Receipt Date: 20251027
  Transmission Date: 20260118
  Serious: Yes (Other)
  Sender: MERCK SHARP & DOHME LLC
  Company Number: None

PATIENT
  Age: 75 Year
  Sex: Male
  Weight: 87 kg

DRUGS (5)
  1. PEMBROLIZUMAB [Suspect]
     Active Substance: PEMBROLIZUMAB
     Indication: Transitional cell carcinoma
     Dosage: CYCLICAL
     Dates: start: 20250310, end: 20250813
  2. PEMBROLIZUMAB [Suspect]
     Active Substance: PEMBROLIZUMAB
     Indication: Transitional cell carcinoma
     Dosage: CYCLICAL
     Dates: start: 20250912
  3. PADCEV [Suspect]
     Active Substance: ENFORTUMAB VEDOTIN-EJFV
     Indication: Transitional cell carcinoma
     Dosage: TIME INTERVAL: CYCLICAL
     Route: 042
     Dates: start: 20250716, end: 20250813
  4. PADCEV [Suspect]
     Active Substance: ENFORTUMAB VEDOTIN-EJFV
     Indication: Transitional cell carcinoma
     Dosage: TIME INTERVAL: CYCLICAL
     Route: 042
     Dates: start: 20250310, end: 20250429
  5. PADCEV [Suspect]
     Active Substance: ENFORTUMAB VEDOTIN-EJFV
     Indication: Transitional cell carcinoma
     Dosage: TIME INTERVAL: CYCLICAL
     Route: 042
     Dates: start: 20250513, end: 20250630

REACTIONS (2)
  - Neuropathy peripheral [Recovering/Resolving]
  - Skin reaction [Recovering/Resolving]

NARRATIVE: CASE EVENT DATE: 20250501
